FAERS Safety Report 12370002 (Version 1)
Quarter: 2016Q2

REPORT INFORMATION
  Report Type: Report from Study
  Country: BR (occurrence: BR)
  Receive Date: 20160516
  Receipt Date: 20160516
  Transmission Date: 20160815
  Serious: Yes (Other)
  Sender: FDA-Public Use
  Company Number: BR-ABBVIE-16K-020-1624799-00

PATIENT
  Age: 50 Year
  Sex: Female
  Weight: 69 kg

DRUGS (3)
  1. ATENOLOL. [Concomitant]
     Active Substance: ATENOLOL
     Indication: PRESYNCOPE
     Route: 048
     Dates: start: 2001
  2. ETANERCEPT [Suspect]
     Active Substance: ETANERCEPT
     Indication: PRODUCT USED FOR UNKNOWN INDICATION
     Route: 065
     Dates: end: 201603
  3. HUMIRA [Suspect]
     Active Substance: ADALIMUMAB
     Indication: ANKYLOSING SPONDYLITIS
     Route: 058
     Dates: start: 20131112

REACTIONS (26)
  - Tendonitis [Recovered/Resolved]
  - Cyst [Unknown]
  - Morton^s neuralgia [Unknown]
  - Arthralgia [Recovered/Resolved]
  - Spinal pain [Recovered/Resolved]
  - Fatigue [Recovered/Resolved]
  - Pain [Recovered/Resolved]
  - Pain in extremity [Not Recovered/Not Resolved]
  - Drug ineffective [Unknown]
  - Musculoskeletal pain [Unknown]
  - Peripheral swelling [Unknown]
  - Balance disorder [Unknown]
  - Tendon rupture [Recovering/Resolving]
  - Arthralgia [Unknown]
  - Plantar fasciitis [Recovered/Resolved]
  - Pain [Recovering/Resolving]
  - Post procedural haemorrhage [Recovered/Resolved]
  - Malaise [Recovered/Resolved]
  - Musculoskeletal stiffness [Recovered/Resolved]
  - Myalgia [Unknown]
  - Inflammation [Unknown]
  - Hyperhidrosis [Unknown]
  - Bursitis [Unknown]
  - Skin lesion [Recovering/Resolving]
  - Muscle rigidity [Recovered/Resolved]
  - Sluggishness [Unknown]

NARRATIVE: CASE EVENT DATE: 201412
